FAERS Safety Report 5923373-7 (Version None)
Quarter: 2008Q4

REPORT INFORMATION
  Report Type: 
  Country: None (occurrence: None)
  Receive Date: 20081020
  Receipt Date: 20080917
  Transmission Date: 20090506
  Serious: No
  Sender: FDA-Public Use
  Company Number: US-BAYER-200830703NA

PATIENT
  Age: 36 Year
  Sex: Female

DRUGS (1)
  1. CLIMARA [Suspect]
     Indication: MENOPAUSE
     Route: 062

REACTIONS (2)
  - HOT FLUSH [None]
  - PRODUCT QUALITY ISSUE [None]
